FAERS Safety Report 9130197 (Version 2)
Quarter: 2013Q1

REPORT INFORMATION
  Report Type: Spontaneous
  Country: US (occurrence: US)
  Receive Date: 20130228
  Receipt Date: 20130327
  Transmission Date: 20140127
  Serious: Yes (Death, Other)
  Sender: FDA-Public Use
  Company Number: US-ROCHE-1196398

PATIENT
  Sex: Female

DRUGS (2)
  1. AVASTIN [Suspect]
     Indication: BREAST CANCER METASTATIC
     Route: 065
  2. TAXOL [Concomitant]
     Indication: BREAST CANCER METASTATIC

REACTIONS (2)
  - Disease progression [Fatal]
  - Metastases to central nervous system [Unknown]
